FAERS Safety Report 9787756 (Version 3)
Quarter: 2014Q1

REPORT INFORMATION
  Report Type: Report from Study
  Country: DE (occurrence: DE)
  Receive Date: 20131230
  Receipt Date: 20140205
  Transmission Date: 20141002
  Serious: Yes (Hospitalization)
  Sender: FDA-Public Use
  Company Number: DE-ABBVIE-13P-062-1160798-00

PATIENT
  Age: 50 Year
  Sex: Female

DRUGS (4)
  1. HUMIRA [Suspect]
     Indication: PSORIATIC ARTHROPATHY
     Route: 058
     Dates: start: 20070905, end: 20131009
  2. HUMIRA [Suspect]
     Route: 058
     Dates: start: 20131106, end: 20131204
  3. HUMIRA [Suspect]
     Route: 058
     Dates: end: 20140128
  4. HUMIRA [Suspect]
     Route: 058

REACTIONS (4)
  - Foot fracture [Not Recovered/Not Resolved]
  - Fall [Recovering/Resolving]
  - Ankle fracture [Recovering/Resolving]
  - Wound infection [Not Recovered/Not Resolved]
